FAERS Safety Report 7365840-8 (Version None)
Quarter: 2011Q1

REPORT INFORMATION
  Report Type: 
  Country: None (occurrence: None)
  Receive Date: 20110316
  Receipt Date: 20110316
  Transmission Date: 20110831
  Serious: Yes (Life-Threatening, Other)
  Sender: FDA-Public Use
  Company Number: None

PATIENT
  Age: 22 Month
  Sex: Female
  Weight: 12.2471 kg

DRUGS (3)
  1. ALBUTEROL SULFATE [Suspect]
     Indication: EAR TUBE INSERTION
     Dosage: 1 NEB TREATMENT TWICE A DAY INHAL
     Route: 055
     Dates: start: 20110306, end: 20110308
  2. ALBUTEROL SULFATE [Suspect]
     Indication: WHEEZING
     Dosage: 1 NEB TREATMENT TWICE A DAY INHAL
     Route: 055
     Dates: start: 20110306, end: 20110308
  3. ALBUTEROL SULFATE [Suspect]
     Indication: PREOPERATIVE CARE
     Dosage: 1 NEB TREATMENT TWICE A DAY INHAL
     Route: 055
     Dates: start: 20110306, end: 20110308

REACTIONS (2)
  - CARDIAC MURMUR [None]
  - ATRIOVENTRICULAR BLOCK SECOND DEGREE [None]
